FAERS Safety Report 7920832-2 (Version None)
Quarter: 2011Q4

REPORT INFORMATION
  Report Type: 
  Country: None (occurrence: None)
  Receive Date: 20111117
  Receipt Date: 20110722
  Transmission Date: 20120403
  Serious: No
  Sender: FDA-Public Use
  Company Number: US-GLAXOSMITHKLINE-A0938921A

PATIENT
  Sex: Male

DRUGS (3)
  1. OXYGEN [Concomitant]
  2. APPETITE STIMULANT [Concomitant]
  3. VOTRIENT [Suspect]
     Indication: PRODUCT USED FOR UNKNOWN INDICATION
     Route: 048
     Dates: start: 20110720, end: 20110723

REACTIONS (5)
  - DECREASED APPETITE [None]
  - DYSPNOEA [None]
  - ADVERSE DRUG REACTION [None]
  - DYSPHONIA [None]
  - TREMOR [None]
